FAERS Safety Report 10372142 (Version 1)
Quarter: 2014Q3

REPORT INFORMATION
  Report Type: Spontaneous
  Country: US (occurrence: US)
  Receive Date: 20140808
  Receipt Date: 20140808
  Transmission Date: 20150326
  Serious: No
  Sender: FDA-Public Use
  Company Number: US-ASTRAZENECA-2014SE55428

PATIENT
  Age: 75 Year
  Sex: Female
  Weight: 62.6 kg

DRUGS (2)
  1. LEVOCETIRIZINE [Concomitant]
     Active Substance: LEVOCETIRIZINE
     Indication: DRUG HYPERSENSITIVITY
     Route: 048
     Dates: start: 20140522
  2. CRESTOR [Suspect]
     Active Substance: ROSUVASTATIN CALCIUM
     Indication: BLOOD CHOLESTEROL INCREASED
     Route: 048
     Dates: start: 20140624, end: 20140629

REACTIONS (7)
  - Cough [Recovered/Resolved]
  - Somnolence [Unknown]
  - Malaise [Unknown]
  - Mobility decreased [Unknown]
  - Asthenia [Recovering/Resolving]
  - Fatigue [Not Recovered/Not Resolved]
  - Depression [Unknown]

NARRATIVE: CASE EVENT DATE: 20140624
